FAERS Safety Report 16278175 (Version 1)
Quarter: 2019Q2

REPORT INFORMATION
  Report Type: Spontaneous
  Country: US (occurrence: US)
  Receive Date: 20190506
  Receipt Date: 20190506
  Transmission Date: 20190711
  Serious: Yes (Death)
  Sender: FDA-Public Use
  Company Number: US-RIGEL PHARMACEUTICALS, INC.-2019FOS000195

PATIENT

DRUGS (5)
  1. TAVALISSE [Suspect]
     Active Substance: FOSTAMATINIB
     Indication: ARTERIOSCLEROSIS CORONARY ARTERY
  2. TAVALISSE [Suspect]
     Active Substance: FOSTAMATINIB
     Indication: RHEUMATOID ARTHRITIS
  3. TAVALISSE [Suspect]
     Active Substance: FOSTAMATINIB
     Indication: RED BLOOD CELL SEDIMENTATION RATE INCREASED
     Dosage: 150 MG, BID
     Route: 048
     Dates: start: 20190306
  4. TAVALISSE [Suspect]
     Active Substance: FOSTAMATINIB
     Indication: SJOGREN^S SYNDROME
  5. TAVALISSE [Suspect]
     Active Substance: FOSTAMATINIB
     Indication: IMMUNE THROMBOCYTOPENIC PURPURA

REACTIONS (1)
  - Death [Fatal]

NARRATIVE: CASE EVENT DATE: 2019
